FAERS Safety Report 6634971-X (Version None)
Quarter: 2010Q1

REPORT INFORMATION
  Report Type: 
  Country: None (occurrence: None)
  Receive Date: 20100315
  Receipt Date: 20100301
  Transmission Date: 20100710
  Serious: Yes (Hospitalization, Other)
  Sender: FDA-Public Use
  Company Number: SG-BRISTOL-MYERS SQUIBB COMPANY-15014756

PATIENT
  Age: 5 Year
  Sex: Female

DRUGS (1)
  1. AMOXICILLIN [Suspect]

REACTIONS (3)
  - GASTROENTERITIS [None]
  - STEVENS-JOHNSON SYNDROME [None]
  - URINARY TRACT INFECTION [None]
